FAERS Safety Report 6046241-1 (Version None)
Quarter: 2009Q1

REPORT INFORMATION
  Report Type: 
  Country: None (occurrence: None)
  Receive Date: 20090122
  Receipt Date: 20090107
  Transmission Date: 20090719
  Serious: Yes (Hospitalization)
  Sender: FDA-Public Use
  Company Number: ES-ELI_LILLY_AND_COMPANY-ES200901000870

PATIENT
  Age: 78 Year
  Sex: Female

DRUGS (4)
  1. FORTEO [Suspect]
     Dosage: 20 UG, UNKNOWN
     Route: 058
     Dates: start: 20080101, end: 20081227
  2. CYMBALTA [Suspect]
     Indication: URINARY INCONTINENCE
     Dosage: UNK, UNKNOWN
     Route: 048
     Dates: start: 20070101
  3. CALCIUM [Concomitant]
     Indication: OSTEOPOROSIS
  4. DIAZEPAM [Concomitant]

REACTIONS (1)
  - ABDOMINAL PAIN [None]
